FAERS Safety Report 5733295-2 (Version None)
Quarter: 2008Q2

REPORT INFORMATION
  Report Type: 
  Country: None (occurrence: None)
  Receive Date: 20080509
  Receipt Date: 20080501
  Transmission Date: 20081010
  Serious: Yes (Other)
  Sender: FDA-Public Use
  Company Number: PHEH2008US00981

PATIENT
  Age: 81 Year
  Sex: Male
  Weight: 76.19 kg

DRUGS (13)
  1. TRIGLIDE [Concomitant]
     Dosage: 50 UNK, QD
     Route: 048
  2. PARATHYROID HORMONES [Concomitant]
  3. METOPROLOL TARTRATE [Concomitant]
     Dosage: 50 UNK, BID
     Route: 048
  4. PLAVIX [Concomitant]
     Dosage: 75 UNK, QD
     Route: 048
  5. CRESTOR [Concomitant]
     Dosage: 20 MG, QHS
     Route: 048
  6. TRICOR [Concomitant]
     Dosage: 145 UNK, QD
     Route: 048
  7. ASPIRIN [Concomitant]
     Dosage: 325 MG, QD
     Route: 048
  8. VITAMIN D [Concomitant]
     Dosage: UNK, QMO
     Dates: start: 20070101
  9. PHOSPHORUS [Concomitant]
     Dosage: UNK, Q3MO
  10. PHOSPHORUS [Concomitant]
     Dosage: UNK, Q3MO
  11. PHOSPHORUS [Concomitant]
     Dosage: UNK, Q3MO
  12. QUINARETIC [Concomitant]
     Dosage: 20/12.5 MG, QD
     Route: 048
  13. DIOVAN HCT [Suspect]
     Indication: HYPERTENSION
     Dosage: 80MGVAL/12.5MGHCTZUNK, UNK
     Route: 048
     Dates: start: 20040420, end: 20080115

REACTIONS (8)
  - ARTERIAL BYPASS OPERATION [None]
  - ARTERIOSCLEROSIS [None]
  - CATARACT [None]
  - DIABETES MELLITUS [None]
  - NEUROPATHY PERIPHERAL [None]
  - RENAL FAILURE CHRONIC [None]
  - STENT PLACEMENT [None]
  - THROMBOCYTOPENIA [None]
